FAERS Safety Report 10344155 (Version 2)
Quarter: 2014Q3

REPORT INFORMATION
  Report Type: Report from Study
  Country: ES (occurrence: None)
  Receive Date: 20140724
  Receipt Date: 20140805
  Transmission Date: 20150326
  Serious: Yes (Hospitalization, Other)
  Sender: FDA-Public Use
  Company Number: 2014MPI00842

PATIENT
  Sex: Male

DRUGS (9)
  1. VITAMIN B COMPLEX (CALCIUIM PANTOTHENATE, NICOTINAMIDE, PYRIDOXINE HYDROCHLORIDED, RIBOFLAVIN, THIAMINE HYDROCHLORIDE) [Concomitant]
  2. ZOLPIDEM [Concomitant]
     Active Substance: ZOLPIDEM\ZOLPIDEM TARTRATE
  3. OMEPRAZOLE (OMEPRAZOLE) [Concomitant]
     Active Substance: OMEPRAZOLE
  4. ATORVASTATIN (ATORVASTATIN CALCIUM) [Concomitant]
  5. PREGABALIN (PREGABALIN) [Concomitant]
     Active Substance: PREGABALIN
  6. ESCITALOPRAM [Concomitant]
     Active Substance: ESCITALOPRAM OXALATE
  7. DOXAZOSIN (DOXAZOSIN MESILATE) [Concomitant]
  8. BRENTUXIMAB VEDOTIN (BRENTUXIMAB VEDOTIN) INJECTION [Suspect]
     Active Substance: BRENTUXIMAB VEDOTIN
     Indication: HODGKIN^S DISEASE
     Route: 042
     Dates: start: 20140123, end: 20140514
  9. TAMSULOSINA (TAMSULOSIN HYDROCHLORIDE) [Concomitant]

REACTIONS (2)
  - Neuropathy peripheral [None]
  - Guillain-Barre syndrome [None]

NARRATIVE: CASE EVENT DATE: 20140616
